FAERS Safety Report 6238467-9 (Version None)
Quarter: 2009Q2

REPORT INFORMATION
  Report Type: 
  Country: None (occurrence: None)
  Receive Date: 20090622
  Receipt Date: 20090610
  Transmission Date: 20091009
  Serious: Yes (Life-Threatening, Other)
  Sender: FDA-Public Use
  Company Number: JP-PFIZER INC-2009226186

PATIENT

DRUGS (2)
  1. AMLODIPINE BESYLATE [Suspect]
  2. LEVOTHYROXINE SODIUM [Suspect]

REACTIONS (2)
  - ALTERED STATE OF CONSCIOUSNESS [None]
  - MULTIPLE DRUG OVERDOSE [None]
